FAERS Safety Report 4387459-3 (Version None)
Quarter: 2004Q2

REPORT INFORMATION
  Report Type: 
  Country: None (occurrence: None)
  Receive Date: 20040630
  Receipt Date: 20040323
  Transmission Date: 20050107
  Serious: No
  Sender: FDA-Public Use
  Company Number: US-BRISTOL-MYERS SQUIBB COMPANY-12542064

PATIENT
  Age: 17 Year

DRUGS (3)
  1. REYATAZ [Suspect]
  2. DIDANOSINE EC [Suspect]
  3. EMTRIVA [Suspect]

REACTIONS (1)
  - CUSHINGOID [None]
